FAERS Safety Report 23387418 (Version 1)
Quarter: 2024Q1

REPORT INFORMATION
  Report Type: Spontaneous
  Country: US (occurrence: None)
  Receive Date: 20240109
  Receipt Date: 20240109
  Transmission Date: 20240409
  Serious: No
  Sender: FDA-Public Use
  Company Number: None

PATIENT
  Age: 74 Year
  Sex: Male

DRUGS (2)
  1. TRAVATAN [Suspect]
     Active Substance: TRAVOPROST
  2. LATANOPROST [Suspect]
     Active Substance: LATANOPROST

REACTIONS (3)
  - Intraocular pressure increased [None]
  - Optic nerve injury [None]
  - Visual field tests abnormal [None]

NARRATIVE: CASE EVENT DATE: 20240109
